FAERS Safety Report 7944855-2 (Version None)
Quarter: 2011Q4

REPORT INFORMATION
  Report Type: 
  Country: None (occurrence: None)
  Receive Date: 20111129
  Receipt Date: 20110128
  Transmission Date: 20120403
  Serious: No
  Sender: FDA-Public Use
  Company Number: US-MYLANLABS-2011S1000810

PATIENT
  Age: 49 Year
  Sex: Female

DRUGS (4)
  1. IRON [Concomitant]
     Dosage: 65MG X 2
  2. CHLORTHALIDONE [Suspect]
     Indication: BLOOD PRESSURE INCREASED
     Dates: start: 20101103
  3. PAROXETINE HCL [Concomitant]
  4. AMLODIPINE BESYLATE [Suspect]
     Indication: HYPERTENSION
     Dates: start: 20101103

REACTIONS (1)
  - ABDOMINAL PAIN [None]
